FAERS Safety Report 18491504 (Version 1)
Quarter: 2020Q4

REPORT INFORMATION
  Report Type: Spontaneous
  Country: US (occurrence: US)
  Receive Date: 20201111
  Receipt Date: 20201111
  Transmission Date: 20210114
  Serious: No
  Sender: FDA-Public Use
  Company Number: US-BAYER-2020-241106

PATIENT
  Sex: Female

DRUGS (1)
  1. CLARITIN [Suspect]
     Active Substance: LORATADINE
     Indication: PROPHYLAXIS
     Dosage: 1 DF
     Route: 048

REACTIONS (4)
  - Wrong technique in product usage process [None]
  - Product packaging difficult to open [None]
  - Product use in unapproved indication [None]
  - Off label use [None]
